FAERS Safety Report 7214854-7 (Version None)
Quarter: 2011Q1

REPORT INFORMATION
  Report Type: 
  Country: None (occurrence: None)
  Receive Date: 20110107
  Receipt Date: 20100406
  Transmission Date: 20110831
  Serious: No
  Sender: FDA-Public Use
  Company Number: A0853736A

PATIENT
  Age: 63 Year
  Sex: Female

DRUGS (8)
  1. COUMADIN [Concomitant]
  2. ELAVIL [Concomitant]
  3. PANDEMIC VACCINE H1N1 (NON-GSK) [Suspect]
     Indication: PROPHYLAXIS
     Route: 065
     Dates: start: 20100201, end: 20100201
  4. LOVAZA [Suspect]
     Dosage: 1CAPL TWICE PER DAY
     Route: 048
     Dates: start: 20080101
  5. MULTIVITAMIN [Concomitant]
  6. TRAZODONE [Concomitant]
  7. ATENOLOL [Concomitant]
  8. ATIVAN [Concomitant]

REACTIONS (3)
  - PYREXIA [None]
  - AGEUSIA [None]
  - NASOPHARYNGITIS [None]
